FAERS Safety Report 24364985 (Version 1)
Quarter: 2024Q3

REPORT INFORMATION
  Report Type: Spontaneous
  Country: DE (occurrence: DE)
  Receive Date: 20240926
  Receipt Date: 20240926
  Transmission Date: 20241017
  Serious: Yes (Other)
  Sender: BRISTOL MYERS SQUIBB
  Company Number: DE-BRISTOL-MYERS SQUIBB COMPANY-2024-151749

PATIENT
  Sex: Male

DRUGS (1)
  1. ELIQUIS [Suspect]
     Active Substance: APIXABAN
     Indication: Product used for unknown indication

REACTIONS (5)
  - Fall [Unknown]
  - Haemorrhage [Unknown]
  - Haematoma [Unknown]
  - Blood loss anaemia [Unknown]
  - Injury [Unknown]

NARRATIVE: CASE EVENT DATE: 20240920
